FAERS Safety Report 24567537 (Version 1)
Quarter: 2024Q4

REPORT INFORMATION
  Report Type: Report from Study
  Country: US (occurrence: US)
  Receive Date: 20241031
  Receipt Date: 20241031
  Transmission Date: 20250115
  Serious: Yes (Hospitalization)
  Sender: ALEXION PHARMACEUTICALS
  Company Number: US-AstraZeneca-CH-00733224A

PATIENT
  Weight: 66.224 kg

DRUGS (4)
  1. SELUMETINIB [Suspect]
     Active Substance: SELUMETINIB
     Indication: Malignant neoplasm of spinal cord
  2. SELUMETINIB [Suspect]
     Active Substance: SELUMETINIB
  3. SELUMETINIB [Suspect]
     Active Substance: SELUMETINIB
  4. SELUMETINIB [Suspect]
     Active Substance: SELUMETINIB

REACTIONS (4)
  - Pain [Recovering/Resolving]
  - Musculoskeletal stiffness [Recovering/Resolving]
  - Fatigue [Unknown]
  - Nausea [Recovering/Resolving]
